FAERS Safety Report 8976869 (Version 1)
Quarter: 2012Q4

REPORT INFORMATION
  Report Type: 
  Country: US (occurrence: US)
  Receive Date: 20121220
  Receipt Date: 20121220
  Transmission Date: 20130627
  Serious: No
  Sender: FDA-Public Use
  Company Number: US-GLAXOSMITHKLINE-A0968214A

PATIENT
  Age: 67 Year
  Sex: Male

DRUGS (6)
  1. RYTHMOL [Suspect]
     Indication: ATRIAL FIBRILLATION
     Dosage: 150MG Twice per day
     Route: 048
     Dates: start: 20120201
  2. PRADAXA [Concomitant]
  3. METOPROLOL [Concomitant]
  4. TRICOR [Concomitant]
  5. UNKNOWN MEDICATION [Concomitant]
  6. CENTRUM VITAMIN [Concomitant]

REACTIONS (2)
  - Oral pain [Not Recovered/Not Resolved]
  - Dry mouth [Unknown]
